FAERS Safety Report 4301915-5 (Version None)
Quarter: 2004Q1

REPORT INFORMATION
  Report Type: 
  Country: None (occurrence: None)
  Receive Date: 20040223
  Receipt Date: 20040122
  Transmission Date: 20041129
  Serious: Yes (Hospitalization)
  Sender: FDA-Public Use
  Company Number: BE-BRISTOL-MYERS SQUIBB COMPANY-12483525

PATIENT
  Age: 54 Year
  Sex: Male

DRUGS (2)
  1. BLINDED: ABATACEPT [Suspect]
     Indication: RHEUMATOID ARTHRITIS
     Route: 042
     Dates: start: 20030218
  2. BLINDED: METHOTREXATE [Suspect]
     Dosage: 12.5MG/WK FROM 13-MAR-2001 TO 09-JAN-03
     Route: 048
     Dates: start: 20010313

REACTIONS (3)
  - ATELECTASIS [None]
  - BRONCHOPNEUMONIA [None]
  - PNEUMONIA [None]
